FAERS Safety Report 14777755 (Version 1)
Quarter: 2018Q2

REPORT INFORMATION
  Report Type: Spontaneous
  Country: FR (occurrence: FR)
  Receive Date: 20180419
  Receipt Date: 20180419
  Transmission Date: 20180711
  Serious: Yes (Hospitalization)
  Sender: FDA-Public Use
  Company Number: FR-UCBSA-2018017459

PATIENT
  Age: 43 Year
  Sex: Male
  Weight: 62 kg

DRUGS (3)
  1. ALEPSAL (ATROPA BELLADONNA\CAFFEINE\PHENOBARBITAL) [Suspect]
     Active Substance: ATROPA BELLADONNA\CAFFEINE\PHENOBARBITAL
     Indication: EPILEPSY
     Dosage: 50 MG DAILY DOSE
     Route: 048
     Dates: start: 20171113
  2. VIMPAT [Suspect]
     Active Substance: LACOSAMIDE
     Indication: EPILEPSY
     Dosage: 150 MG DAILY DOSE
     Route: 048
     Dates: start: 201307
  3. TEGRETOL [Suspect]
     Active Substance: CARBAMAZEPINE
     Indication: EPILEPSY
     Dosage: 1200 MG DAILY DOSE
     Route: 048
     Dates: start: 2011

REACTIONS (2)
  - Leukopenia [Recovered/Resolved]
  - Neutropenia [Not Recovered/Not Resolved]

NARRATIVE: CASE EVENT DATE: 20180314
